FAERS Safety Report 11967436 (Version 1)
Quarter: 2016Q1

REPORT INFORMATION
  Report Type: Spontaneous
  Country: IT (occurrence: IT)
  Receive Date: 20160127
  Receipt Date: 20160127
  Transmission Date: 20160526
  Serious: Yes (Hospitalization)
  Sender: FDA-Public Use
  Company Number: IT-ABBVIE-16P-083-1547619-00

PATIENT
  Age: 37 Year
  Sex: Female

DRUGS (2)
  1. LORAZEPAM. [Suspect]
     Active Substance: LORAZEPAM
     Indication: SUICIDAL IDEATION
     Dosage: TOTAL
     Route: 048
     Dates: start: 20151224, end: 20151224
  2. VALPROATE SODIUM. [Suspect]
     Active Substance: VALPROATE SODIUM
     Indication: SUICIDAL IDEATION
     Dosage: 100 DOSAGE FORM TOTAL
     Route: 048
     Dates: start: 20151224, end: 20151224

REACTIONS (2)
  - Coma [Recovering/Resolving]
  - Drug abuse [Recovering/Resolving]

NARRATIVE: CASE EVENT DATE: 20151224
